FAERS Safety Report 5356663-X (Version None)
Quarter: 2007Q2

REPORT INFORMATION
  Report Type: 
  Country: None (occurrence: None)
  Receive Date: 20070612
  Receipt Date: 20070612
  Transmission Date: 20071010
  Serious: Yes (Hospitalization)
  Sender: FDA-Public Use
  Company Number: None

PATIENT
  Sex: Female
  Weight: 79.2 kg

DRUGS (1)
  1. TEMOZOLOMIDE [Suspect]
     Dosage: 190 MG

REACTIONS (4)
  - COUGH [None]
  - LUNG INFILTRATION [None]
  - PHARYNGOLARYNGEAL PAIN [None]
  - PYREXIA [None]
